FAERS Safety Report 25458947 (Version 1)
Quarter: 2025Q2

REPORT INFORMATION
  Report Type: Spontaneous
  Country: US (occurrence: US)
  Receive Date: 20250620
  Receipt Date: 20250620
  Transmission Date: 20250717
  Serious: Yes (Death, Hospitalization, Other)
  Sender: JOHNSON AND JOHNSON
  Company Number: US-JNJFOC-20250619708

PATIENT
  Age: 76 Year
  Sex: Male

DRUGS (1)
  1. CARVYKTI [Suspect]
     Active Substance: CILTACABTAGENE AUTOLEUCEL
     Indication: Plasma cell myeloma refractory
     Dates: start: 20250401

REACTIONS (5)
  - Septic shock [Fatal]
  - Parainfluenzae virus infection [Not Recovered/Not Resolved]
  - Cytokine release syndrome [Unknown]
  - Cranial nerve paralysis [Unknown]
  - Hypofibrinogenaemia [Unknown]
